FAERS Safety Report 24758744 (Version 1)
Quarter: 2024Q4

REPORT INFORMATION
  Report Type: Report from Study
  Country: US (occurrence: US)
  Receive Date: 20241220
  Receipt Date: 20241220
  Transmission Date: 20250115
  Serious: Yes (Other)
  Sender: MYLAN
  Company Number: US-MYLANLABS-2024M1112527

PATIENT
  Age: 54 Year
  Sex: Female

DRUGS (6)
  1. ISOTRETINOIN [Suspect]
     Active Substance: ISOTRETINOIN
     Indication: Erdheim-Chester disease
     Dosage: UNK
     Route: 065
  2. METHOTREXATE [Suspect]
     Active Substance: METHOTREXATE
     Indication: Erdheim-Chester disease
     Dosage: UNK
     Route: 065
  3. HYDROXYCHLOROQUINE [Suspect]
     Active Substance: HYDROXYCHLOROQUINE
     Indication: Erdheim-Chester disease
     Dosage: UNK
     Route: 065
  4. HUMAN IMMUNOGLOBULIN G [Suspect]
     Active Substance: HUMAN IMMUNOGLOBULIN G
     Indication: Erdheim-Chester disease
     Dosage: UNK
     Route: 042
  5. THALIDOMIDE [Suspect]
     Active Substance: THALIDOMIDE
     Indication: Erdheim-Chester disease
     Dosage: UNK
     Route: 065
  6. PEMIGATINIB [Concomitant]
     Active Substance: PEMIGATINIB
     Indication: Erdheim-Chester disease
     Dosage: 4.5 MILLIGRAM, CYCLE (ON DAYS 1-14 OF A 21-DAYS CYCLE)
     Route: 065

REACTIONS (2)
  - Drug ineffective for unapproved indication [Unknown]
  - Off label use [Unknown]
